FAERS Safety Report 12549978 (Version 3)
Quarter: 2016Q4

REPORT INFORMATION
  Report Type: Spontaneous
  Country: US (occurrence: US)
  Receive Date: 20160712
  Receipt Date: 20161028
  Transmission Date: 20170207
  Serious: Yes (Other)
  Sender: FDA-Public Use
  Company Number: US-TEVA-675308USA

PATIENT
  Sex: Female
  Weight: 59.02 kg

DRUGS (1)
  1. ZECUITY [Suspect]
     Active Substance: SUMATRIPTAN SUCCINATE
     Indication: MIGRAINE
     Route: 062

REACTIONS (4)
  - Application site erythema [Recovered/Resolved]
  - Migraine [Unknown]
  - Application site burn [Recovered/Resolved]
  - Drug effect decreased [Unknown]
